FAERS Safety Report 20680867 (Version 1)
Quarter: 2022Q2

REPORT INFORMATION
  Report Type: Spontaneous
  Country: US (occurrence: US)
  Receive Date: 20220406
  Receipt Date: 20220406
  Transmission Date: 20220721
  Serious: Yes (Other)
  Sender: FDA-Public Use
  Company Number: US-NOVARTISPH-NVSC2022US076734

PATIENT

DRUGS (5)
  1. METOPROLOL [Suspect]
     Active Substance: METOPROLOL
     Indication: Foetal exposure during pregnancy
     Dosage: MATERNAL DOSE:UNK
     Route: 064
  2. DILTIAZEM [Suspect]
     Active Substance: DILTIAZEM
     Indication: Foetal exposure during pregnancy
     Dosage: MATERNAL DOSE: UNK
     Route: 064
  3. SOTALOL [Suspect]
     Active Substance: SOTALOL
     Indication: Foetal exposure during pregnancy
     Dosage: MATERNAL DOSE: UNK
     Route: 064
  4. FLECAINIDE [Suspect]
     Active Substance: FLECAINIDE
     Indication: Foetal exposure during pregnancy
     Dosage: MATERNAL DOSE: UNK
     Route: 064
  5. ADENOSINE [Suspect]
     Active Substance: ADENOSINE
     Indication: Foetal exposure during pregnancy
     Dosage: MATERNAL DOSE: UNK
     Route: 064

REACTIONS (2)
  - Premature baby [Unknown]
  - Foetal exposure during pregnancy [Unknown]
